FAERS Safety Report 7129592-9 (Version None)
Quarter: 2010Q4

REPORT INFORMATION
  Report Type: 
  Country: None (occurrence: None)
  Receive Date: 20101130
  Receipt Date: 20101118
  Transmission Date: 20110411
  Serious: Yes (Hospitalization)
  Sender: FDA-Public Use
  Company Number: PHHY2010US70966

PATIENT
  Sex: Male

DRUGS (2)
  1. EXJADE [Suspect]
     Indication: 5Q MINUS SYNDROME
     Dosage: 125 MG, TID
     Route: 048
  2. BLOOD TRANSFUSION, AUXILIARY PRODUCTS [Concomitant]
     Dosage: 2 UNITS EVERY 2 WEEKS

REACTIONS (3)
  - ABDOMINAL PAIN [None]
  - BLOOD COUNT ABNORMAL [None]
  - DIARRHOEA [None]
